FAERS Safety Report 7301802-4 (Version None)
Quarter: 2011Q1

REPORT INFORMATION
  Report Type: 
  Country: None (occurrence: None)
  Receive Date: 20110218
  Receipt Date: 20110214
  Transmission Date: 20110831
  Serious: Yes (Disabling)
  Sender: FDA-Public Use
  Company Number: B0699701A

PATIENT
  Age: 56 Year
  Sex: Female

DRUGS (4)
  1. PARACETAMOL [Concomitant]
     Indication: PAIN
     Dates: start: 20110128
  2. ORAMORPH SR [Concomitant]
     Indication: PAIN
     Route: 048
     Dates: start: 20110128
  3. CODEINE SULFATE [Concomitant]
     Indication: PAIN
     Route: 048
     Dates: start: 20110128
  4. TOPOTECAN [Suspect]
     Indication: OVARIAN CANCER RECURRENT
     Route: 042
     Dates: start: 20100101, end: 20110128

REACTIONS (2)
  - POLYNEUROPATHY [None]
  - PAIN [None]
